FAERS Safety Report 14903503 (Version 1)
Quarter: 2018Q2

REPORT INFORMATION
  Report Type: Report from Study
  Country: IT (occurrence: IT)
  Receive Date: 20180516
  Receipt Date: 20180516
  Transmission Date: 20180711
  Serious: Yes (Hospitalization)
  Sender: FDA-Public Use
  Company Number: PHHY2018IT007020

PATIENT
  Age: 66 Year
  Sex: Female

DRUGS (1)
  1. GILENYA [Suspect]
     Active Substance: FINGOLIMOD HYDROCHLORIDE
     Indication: RELAPSING-REMITTING MULTIPLE SCLEROSIS
     Dosage: UNK
     Route: 065
     Dates: start: 2016

REACTIONS (9)
  - Nervous system disorder [Recovered/Resolved]
  - Ischaemic stroke [Unknown]
  - Sopor [Unknown]
  - Multiple sclerosis relapse [Unknown]
  - Seizure [Unknown]
  - Hypertension [Recovering/Resolving]
  - Stenosis [Recovered/Resolved]
  - Aphasia [Recovered/Resolved]
  - Motor dysfunction [Recovered/Resolved]
